FAERS Safety Report 5443024-8 (Version None)
Quarter: 2007Q3

REPORT INFORMATION
  Report Type: 
  Country: None (occurrence: None)
  Receive Date: 20070905
  Receipt Date: 20070903
  Transmission Date: 20080115
  Serious: Yes (Hospitalization)
  Sender: FDA-Public Use
  Company Number: SE-BRISTOL-MYERS SQUIBB COMPANY-13896147

PATIENT
  Age: 66 Year
  Sex: Female

DRUGS (16)
  1. BLINDED: APIXABAN [Suspect]
     Route: 048
     Dates: start: 20070829, end: 20070831
  2. BLINDED: PLACEBO [Suspect]
     Dosage: GIVEN ALONG WITH BOTH APIXABAN AND ENOXAPARIN
     Route: 048
     Dates: start: 20070829, end: 20070831
  3. BLINDED: ENOXAPARIN [Suspect]
     Route: 058
     Dates: start: 20070829, end: 20070831
  4. ACETAMINOPHEN [Concomitant]
     Dates: start: 20040101
  5. GAVISCON [Concomitant]
     Dates: start: 19950101
  6. OXYCODONE HCL [Concomitant]
     Dates: start: 20070828
  7. NEXIUM [Concomitant]
     Dates: start: 19950101
  8. TAVEGYL [Concomitant]
     Dates: start: 20070831
  9. LAXOBERAL [Concomitant]
     Dates: start: 20070831, end: 20070831
  10. GLUCOSE [Concomitant]
     Dates: start: 20070828, end: 20070829
  11. CLOXACILLIN SODIUM [Concomitant]
     Dates: start: 20070828, end: 20070829
  12. NAROPIN [Concomitant]
     Dates: start: 20070828, end: 20070829
  13. TORADOL [Concomitant]
     Dates: start: 20070828, end: 20070829
  14. EPINEPHRINE [Concomitant]
     Dates: start: 20070828, end: 20070829
  15. ZOLPIDEM TARTRATE [Concomitant]
     Dates: start: 20070829, end: 20070830
  16. INNOHEP [Concomitant]
     Dates: start: 20070831

REACTIONS (1)
  - HAEMOGLOBIN DECREASED [None]
